FAERS Safety Report 5528756-5 (Version None)
Quarter: 2007Q4

REPORT INFORMATION
  Report Type: 
  Country: None (occurrence: None)
  Receive Date: 20071126
  Receipt Date: 20071031
  Transmission Date: 20080405
  Serious: Yes (Other)
  Sender: FDA-Public Use
  Company Number: FDB-2007-028

PATIENT
  Age: 84 Year
  Sex: Male
  Weight: 73.9363 kg

DRUGS (3)
  1. CIS-PYRO [Suspect]
     Indication: SCAN
     Dosage: 1/2 VIAL IN 1.5ML - IV
     Route: 042
     Dates: start: 20071031
  2. THYROID TAB [Concomitant]
  3. IV PROTONICS [Concomitant]

REACTIONS (1)
  - OEDEMA PERIPHERAL [None]
